FAERS Safety Report 23601228 (Version 2)
Quarter: 2024Q1

REPORT INFORMATION
  Report Type: Spontaneous
  Country: SE (occurrence: SE)
  Receive Date: 20240306
  Receipt Date: 20240324
  Transmission Date: 20240410
  Serious: Yes (Hospitalization, Other)
  Sender: FDA-Public Use
  Company Number: None

PATIENT
  Age: 70 Year
  Sex: Female

DRUGS (4)
  1. RISPERDAL [Suspect]
     Active Substance: RISPERIDONE
     Indication: Schizoaffective disorder
     Route: 065
  2. ASPIRIN [Concomitant]
     Active Substance: ASPIRIN
     Dates: end: 202305
  3. LORAZEPAM [Concomitant]
     Active Substance: LORAZEPAM
     Dosage: 9 MG
  4. NAPROXEN [Concomitant]
     Active Substance: NAPROXEN
     Dates: end: 202305

REACTIONS (4)
  - Hallucination, auditory [Unknown]
  - Delusion [Unknown]
  - Hyperprolactinaemia [Unknown]
  - Drug ineffective [Unknown]

NARRATIVE: CASE EVENT DATE: 20230101
